FAERS Safety Report 13198032 (Version 1)
Quarter: 2017Q1

REPORT INFORMATION
  Report Type: Spontaneous
  Country: US (occurrence: US)
  Receive Date: 20170208
  Receipt Date: 20170208
  Transmission Date: 20170428
  Serious: No
  Sender: FDA-Public Use
  Company Number: US-PERRIGO-16US019964

PATIENT
  Age: 62 Year
  Sex: Male
  Weight: 97.51 kg

DRUGS (7)
  1. METOPROLOL. [Concomitant]
     Active Substance: METOPROLOL
     Indication: HYPERTENSION
     Dosage: 100 MG, UNKNOWN
     Route: 048
     Dates: start: 201510
  2. IBUPROFEN AND DIPHENHYDRAMINE CITRATE [Suspect]
     Active Substance: DIPHENHYDRAMINE CITRATE\IBUPROFEN
     Indication: INSOMNIA
     Dosage: ONE TABLET, QHS
     Route: 048
     Dates: start: 20160825, end: 20160906
  3. IBUPROFEN AND DIPHENHYDRAMINE CITRATE [Suspect]
     Active Substance: DIPHENHYDRAMINE CITRATE\IBUPROFEN
     Indication: PAIN
     Dosage: ONE TABLET, BID
     Route: 048
     Dates: start: 20160823, end: 20160824
  4. IBUPROFEN AND DIPHENHYDRAMINE CITRATE [Suspect]
     Active Substance: DIPHENHYDRAMINE CITRATE\IBUPROFEN
     Dosage: ONE TABLET, QHS
     Route: 048
     Dates: start: 20160907, end: 20160908
  5. ATORVASTIN [Concomitant]
     Active Substance: ATORVASTATIN
     Indication: BLOOD CHOLESTEROL INCREASED
     Dosage: 10 MG, UNKNOWN
     Route: 048
     Dates: start: 201510
  6. IBUPROFEN. [Concomitant]
     Active Substance: IBUPROFEN
     Indication: PAIN
     Dosage: 200 MG, UNKNOWN
     Route: 048
     Dates: start: 20160823, end: 20160904
  7. AMOXICILLIN. [Concomitant]
     Active Substance: AMOXICILLIN
     Indication: INFECTION
     Dosage: 500 MG, UNKNOWN
     Route: 048
     Dates: start: 20160829

REACTIONS (4)
  - Drug effect decreased [Unknown]
  - Underdose [Recovered/Resolved]
  - Inappropriate schedule of drug administration [Recovered/Resolved]
  - Incorrect drug administration duration [Recovered/Resolved]

NARRATIVE: CASE EVENT DATE: 20150823
